FAERS Safety Report 17937910 (Version 3)
Quarter: 2020Q4

REPORT INFORMATION
  Report Type: Spontaneous
  Country: US (occurrence: US)
  Receive Date: 20200624
  Receipt Date: 20201218
  Transmission Date: 20210113
  Serious: Yes (Other)
  Sender: FDA-Public Use
  Company Number: US-GILEAD-2020-0473280

PATIENT
  Age: 57 Year
  Sex: Male

DRUGS (4)
  1. TRUVADA [Suspect]
     Active Substance: EMTRICITABINE\TENOFOVIR DISOPROXIL FUMARATE
     Indication: HIV INFECTION
     Dosage: UNK
     Route: 048
     Dates: start: 2005, end: 20180701
  2. BIKTARVY [Concomitant]
     Active Substance: BICTEGRAVIR SODIUM\EMTRICITABINE\TENOFOVIR ALAFENAMIDE FUMARATE
  3. VIREAD [Suspect]
     Active Substance: TENOFOVIR DISOPROXIL FUMARATE
     Indication: HIV INFECTION
     Dosage: UNK
     Route: 048
     Dates: start: 20020601, end: 20180701
  4. ATRIPLA [Suspect]
     Active Substance: EFAVIRENZ\EMTRICITABINE\TENOFOVIR DISOPROXIL FUMARATE
     Indication: HIV INFECTION
     Dosage: UNK
     Route: 048
     Dates: start: 2007, end: 20180701

REACTIONS (7)
  - Bone density decreased [Not Recovered/Not Resolved]
  - Osteonecrosis [Unknown]
  - Skeletal injury [Unknown]
  - Tooth loss [Not Recovered/Not Resolved]
  - Bone loss [Unknown]
  - Renal injury [Unknown]
  - Multiple fractures [Unknown]

NARRATIVE: CASE EVENT DATE: 20180701
